FAERS Safety Report 8487027-8 (Version None)
Quarter: 2012Q3

REPORT INFORMATION
  Report Type: 
  Country: None (occurrence: None)
  Receive Date: 20120704
  Receipt Date: 20120629
  Transmission Date: 20120928
  Serious: Yes (Death, Life-Threatening, Hospitalization, Other)
  Sender: FDA-Public Use
  Company Number: PHHY2012JP041953

PATIENT
  Age: 58 Year
  Sex: Male

DRUGS (13)
  1. AFINITOR [Suspect]
     Dosage: 10 MG, QD
     Route: 048
     Dates: start: 20110129
  2. SELBEX [Concomitant]
     Indication: METASTATIC RENAL CELL CARCINOMA
     Dosage: 150 MG, UNK
     Route: 048
     Dates: start: 20100507
  3. ALLOPURINOL [Concomitant]
     Dosage: 200 MG, UNK
     Route: 048
     Dates: start: 20100507
  4. BETAMETHASONE [Concomitant]
     Dosage: 1 MG, UNK
     Route: 048
     Dates: start: 20101209
  5. MUCOSOLVAN [Concomitant]
     Dosage: 45 MG, UNK
     Route: 048
     Dates: start: 20110120
  6. FAMOTIDINE [Concomitant]
     Dosage: 40 MG, UNK
     Route: 048
     Dates: start: 20101209
  7. AFINITOR [Suspect]
     Indication: METASTATIC RENAL CELL CARCINOMA
     Dosage: 10 MG, QD
     Route: 048
     Dates: start: 20100507, end: 20101122
  8. MAGMITT [Concomitant]
     Dosage: 990 MG, UNK
     Route: 048
     Dates: start: 20101208
  9. AFINITOR [Suspect]
     Dosage: 10 MG, QD
     Route: 048
     Dates: start: 20101124, end: 20110113
  10. LOXOPROFEN [Concomitant]
     Indication: METASTATIC RENAL CELL CARCINOMA
     Dosage: 180 MG, UNK
     Route: 048
     Dates: start: 20100507
  11. SULFAMETHOXAZOLE AND TRIMETHOPRIM [Concomitant]
     Dosage: 2 DF, UNK
     Route: 048
     Dates: start: 20101209
  12. ZOMETA [Concomitant]
     Indication: METASTATIC RENAL CELL CARCINOMA
     Dates: start: 20100509
  13. OXYCONTIN [Concomitant]
     Dosage: 30 MG, UNK
     Route: 048
     Dates: start: 20101209

REACTIONS (15)
  - NEOPLASM PROGRESSION [None]
  - DEATH [None]
  - CYANOSIS [None]
  - VENTRICULAR ARRHYTHMIA [None]
  - HYPOTENSION [None]
  - NEOPLASM MALIGNANT [None]
  - PNEUMONIA BACTERIAL [None]
  - INTERSTITIAL LUNG DISEASE [None]
  - DYSPNOEA [None]
  - OXYGEN SATURATION DECREASED [None]
  - TOTAL LUNG CAPACITY DECREASED [None]
  - LYMPHOCYTE COUNT DECREASED [None]
  - PLEURAL EFFUSION [None]
  - ARRHYTHMIA [None]
  - PNEUMONITIS [None]
